FAERS Safety Report 10638812 (Version 1)
Quarter: 2014Q4

REPORT INFORMATION
  Report Type: Spontaneous
  Country: US (occurrence: US)
  Receive Date: 20141208
  Receipt Date: 20141208
  Transmission Date: 20150529
  Serious: Yes (Death)
  Sender: FDA-Public Use
  Company Number: US-BAUSCH-BL-2014-010301

PATIENT
  Age: 47 Year
  Sex: Female

DRUGS (1)
  1. XENAZINE [Suspect]
     Active Substance: TETRABENAZINE
     Indication: HUNTINGTON^S DISEASE
     Dosage: 1/2 TAB AT 9AM AND 1PM AND 1
     Route: 048
     Dates: start: 20140213, end: 20141201

REACTIONS (1)
  - Death [Fatal]

NARRATIVE: CASE EVENT DATE: 20141201
